FAERS Safety Report 5876648-4 (Version None)
Quarter: 2008Q3

REPORT INFORMATION
  Report Type: 
  Country: None (occurrence: None)
  Receive Date: 20080908
  Receipt Date: 20080827
  Transmission Date: 20090109
  Serious: No
  Sender: FDA-Public Use
  Company Number: LIT-08-0009-W

PATIENT

DRUGS (1)
  1. ZOLPIDEM [Suspect]

REACTIONS (1)
  - NERVOUS SYSTEM DISORDER [None]
